FAERS Safety Report 6058502-0 (Version None)
Quarter: 2009Q1

REPORT INFORMATION
  Report Type: 
  Country: None (occurrence: None)
  Receive Date: 20090127
  Receipt Date: 20090127
  Transmission Date: 20090719
  Serious: No
  Sender: FDA-Public Use
  Company Number: None

PATIENT
  Age: 64 Year
  Sex: Male

DRUGS (1)
  1. VARENICLINE [Suspect]
     Indication: SMOKING CESSATION THERAPY
     Dosage: 1 MG BID PO
     Route: 048
     Dates: start: 20080407, end: 20080514

REACTIONS (5)
  - AGITATION [None]
  - DRUG INTOLERANCE [None]
  - HALLUCINATION [None]
  - NIGHTMARE [None]
  - POST-TRAUMATIC STRESS DISORDER [None]
